FAERS Safety Report 5118213-2 (Version None)
Quarter: 2006Q4

REPORT INFORMATION
  Report Type: 
  Country: None (occurrence: None)
  Receive Date: 20061002
  Receipt Date: 20060530
  Transmission Date: 20070319
  Serious: No
  Sender: FDA-Public Use
  Company Number: US-BRISTOL-MYERS SQUIBB COMPANY-13393418

PATIENT
  Age: 62 Year
  Sex: Female
  Weight: 42 kg

DRUGS (17)
  1. ORENCIA [Suspect]
     Indication: RHEUMATOID ARTHRITIS
     Route: 042
     Dates: start: 20060525
  2. ESTROGENIC SUBSTANCE [Concomitant]
  3. TYLENOL EXTRA STRENGTH [Concomitant]
  4. TYLENOL PM [Concomitant]
  5. METHOTREXATE [Concomitant]
  6. PLAQUENIL [Concomitant]
  7. VITAMIN D [Concomitant]
  8. PREDNISONE [Concomitant]
  9. XANAX [Concomitant]
  10. FOLIC ACID [Concomitant]
  11. FLORINEF [Concomitant]
  12. MIRALAX [Concomitant]
  13. ASPIRIN [Concomitant]
  14. XALATAN [Concomitant]
     Route: 047
  15. ALPHAGAN [Concomitant]
     Route: 047
  16. FORTEO [Concomitant]
  17. PROZAC [Concomitant]

REACTIONS (9)
  - DIZZINESS [None]
  - DRUG ADMINISTRATION ERROR [None]
  - JOINT SWELLING [None]
  - MALAISE [None]
  - MUSCULAR WEAKNESS [None]
  - NAUSEA [None]
  - OEDEMA PERIPHERAL [None]
  - PAIN IN EXTREMITY [None]
  - PYREXIA [None]
